FAERS Safety Report 16148382 (Version 1)
Quarter: 2019Q2

REPORT INFORMATION
  Report Type: Spontaneous
  Country: CA (occurrence: CA)
  Receive Date: 20190402
  Receipt Date: 20190402
  Transmission Date: 20190711
  Serious: Yes (Other)
  Sender: FDA-Public Use
  Company Number: CA-JNJFOC-20190342169

PATIENT
  Weight: 100 kg

DRUGS (6)
  1. JANUMET [Concomitant]
     Active Substance: METFORMIN HYDROCHLORIDE\SITAGLIPTIN PHOSPHATE
     Indication: TYPE 2 DIABETES MELLITUS
     Dosage: MORNING AND DINNER TIME
     Route: 048
  2. ASA [Concomitant]
     Active Substance: ASPIRIN
     Route: 048
  3. INVOKANA [Suspect]
     Active Substance: CANAGLIFLOZIN
     Indication: TYPE 2 DIABETES MELLITUS
     Route: 048
     Dates: end: 20190221
  4. COVERSYL [Concomitant]
     Active Substance: PERINDOPRIL
     Route: 048
  5. EZETIMIBE. [Concomitant]
     Active Substance: EZETIMIBE
     Route: 065
  6. ROSUVASTATIN. [Concomitant]
     Active Substance: ROSUVASTATIN
     Route: 048

REACTIONS (3)
  - Latent autoimmune diabetes in adults [Unknown]
  - Euglycaemic diabetic ketoacidosis [Unknown]
  - Chronic kidney disease [Unknown]
